FAERS Safety Report 8957791 (Version 1)
Quarter: 2012Q4

REPORT INFORMATION
  Report Type: 
  Country: PL (occurrence: PL)
  Receive Date: 20121210
  Receipt Date: 20121210
  Transmission Date: 20130627
  Serious: Yes (Other)
  Sender: FDA-Public Use
  Company Number: PL-PFIZER INC-2012304222

PATIENT
  Sex: Female
  Weight: 48 kg

DRUGS (1)
  1. REVATIO [Suspect]
     Dosage: 20 unknown units, frequency unspecified

REACTIONS (11)
  - Stomatitis necrotising [Unknown]
  - Gingival pain [Unknown]
  - Heart rate increased [Unknown]
  - Conjunctival hyperaemia [Unknown]
  - Sinusitis [Unknown]
  - Cough [Unknown]
  - Erythema [Unknown]
  - Headache [Unknown]
  - Weight decreased [Unknown]
  - Abdominal pain [Unknown]
  - Diarrhoea [Unknown]
